FAERS Safety Report 21714348 (Version 1)
Quarter: 2022Q4

REPORT INFORMATION
  Report Type: Spontaneous
  Country: EG (occurrence: EG)
  Receive Date: 20221212
  Receipt Date: 20221212
  Transmission Date: 20230113
  Serious: Yes (Life-Threatening, Other)
  Sender: FDA-Public Use
  Company Number: EG-PFIZER INC-PV202200118422

PATIENT
  Age: 31 Year
  Sex: Male

DRUGS (7)
  1. MEROPENEM [Suspect]
     Active Substance: MEROPENEM
     Dosage: 1 G, 3X/DAY (1G/8HRS)
     Route: 042
     Dates: start: 20210916
  2. TYGACIL [Suspect]
     Active Substance: TIGECYCLINE
     Dosage: 50 MG, DAILY (50 MG/24 HRS)
     Route: 042
     Dates: start: 20210916
  3. ZOVIRAX [Suspect]
     Active Substance: ACYCLOVIR
     Dosage: 500 MG, 3X/DAY (500 MG /8 HRS)
     Route: 042
     Dates: start: 20210916
  4. CONTROLOC [Concomitant]
     Active Substance: PANTOPRAZOLE SODIUM
     Dosage: 40 MG, DAILY (40 MG/24 HRS)
     Route: 042
  5. PERFALGAN [Concomitant]
     Active Substance: ACETAMINOPHEN
     Dosage: 1 G, 3X/DAY (1 G/8HRS)
     Route: 042
  6. SOLU-CORTEF [Concomitant]
     Active Substance: HYDROCORTISONE SODIUM SUCCINATE
     Dosage: 50 MG, 4X/DAY (50 MG / 6 HRS)
     Route: 042
  7. FLAGYL [Concomitant]
     Active Substance: METRONIDAZOLE\METRONIDAZOLE HYDROCHLORIDE
     Dosage: 500 MG, 3X/DAY (500 MG/8 HRS)
     Route: 042

REACTIONS (1)
  - Hyperbilirubinaemia [Unknown]

NARRATIVE: CASE EVENT DATE: 20210917
